FAERS Safety Report 6195013-6 (Version None)
Quarter: 2009Q2

REPORT INFORMATION
  Report Type: 
  Country: None (occurrence: None)
  Receive Date: 20090519
  Receipt Date: 20090511
  Transmission Date: 20091009
  Serious: Yes (Life-Threatening, Hospitalization, Other)
  Sender: FDA-Public Use
  Company Number: A0784884A

PATIENT
  Age: 25 Year
  Sex: Female

DRUGS (3)
  1. LAMICTAL [Suspect]
     Dosage: 100MGD PER DAY
     Route: 048
     Dates: start: 20080922
  2. ANTIDEPRESSANT [Concomitant]
  3. SEROQUEL [Concomitant]

REACTIONS (5)
  - HAEMATOCRIT DECREASED [None]
  - LUNG INFECTION [None]
  - PULMONARY THROMBOSIS [None]
  - SEPSIS [None]
  - WEIGHT DECREASED [None]
